FAERS Safety Report 18594528 (Version 1)
Quarter: 2020Q4

REPORT INFORMATION
  Report Type: Spontaneous
  Country: IR (occurrence: IR)
  Receive Date: 20201209
  Receipt Date: 20201209
  Transmission Date: 20210114
  Serious: Yes (Hospitalization)
  Sender: FDA-Public Use
  Company Number: IR-ROCHE-2724681

PATIENT
  Age: 46 Year
  Sex: Female

DRUGS (1)
  1. OCREVUS [Suspect]
     Active Substance: OCRELIZUMAB
     Indication: RELAPSING MULTIPLE SCLEROSIS
     Dosage: LAST (RECENT) INFUSION WAS IN AUG/2020 300 MG /10 MG
     Route: 042

REACTIONS (3)
  - Weight decreased [Unknown]
  - Coronavirus infection [Recovering/Resolving]
  - Respiratory disorder [Unknown]
